FAERS Safety Report 6404923-3 (Version None)
Quarter: 2009Q4

REPORT INFORMATION
  Report Type: 
  Country: None (occurrence: None)
  Receive Date: 20091019
  Receipt Date: 20091012
  Transmission Date: 20100525
  Serious: Yes (Life-Threatening, Hospitalization, Other)
  Sender: FDA-Public Use
  Company Number: SK-BAYER-200925941GPV

PATIENT
  Age: 60 Year
  Sex: Female

DRUGS (7)
  1. AVELOX [Suspect]
     Indication: BRONCHITIS
     Dosage: FIVE DAYS?
     Route: 065
  2. AVELOX [Suspect]
     Route: 065
  3. CONCOR [Concomitant]
  4. LODOZ [Concomitant]
  5. SPIRIVA [Concomitant]
     Dosage: 1-0-1
  6. BERODUAL [Concomitant]
  7. STATIN [Concomitant]
     Indication: HYPERLIPIDAEMIA

REACTIONS (1)
  - ACUTE MYOCARDIAL INFARCTION [None]
